FAERS Safety Report 19565511 (Version 6)
Quarter: 2022Q1

REPORT INFORMATION
  Report Type: Report from Study
  Country: US (occurrence: US)
  Receive Date: 20210715
  Receipt Date: 20220106
  Transmission Date: 20220423
  Serious: No
  Sender: FDA-Public Use
  Company Number: NVSC2021US153408

PATIENT
  Age: 59 Year
  Sex: Male

DRUGS (2)
  1. ENTRESTO [Suspect]
     Active Substance: SACUBITRIL\VALSARTAN
     Indication: Product used for unknown indication
     Dosage: 1 DF, BID (49/51 MGS)
     Route: 048
  2. ENTRESTO [Suspect]
     Active Substance: SACUBITRIL\VALSARTAN
     Route: 048

REACTIONS (4)
  - Anxiety [Unknown]
  - Weight decreased [Unknown]
  - Laziness [Unknown]
  - Fatigue [Unknown]

NARRATIVE: CASE EVENT DATE: 20210823
